FAERS Safety Report 6594475-X (Version None)
Quarter: 2010Q1

REPORT INFORMATION
  Report Type: 
  Country: None (occurrence: None)
  Receive Date: 20100222
  Receipt Date: 20100122
  Transmission Date: 20100710
  Serious: No
  Sender: FDA-Public Use
  Company Number: US-BAYER-201011195BCC

PATIENT
  Age: 47 Year
  Sex: Female
  Weight: 88 kg

DRUGS (8)
  1. ALEVE [Suspect]
     Indication: ARTHRALGIA
     Dosage: UNIT DOSE: 220 MG
     Route: 048
  2. ALEVE [Suspect]
     Route: 048
  3. PLAQUENIL [Concomitant]
     Route: 065
  4. VITAMIN D [Concomitant]
     Route: 065
  5. VITAMIN B COMPLEX CAP [Concomitant]
     Route: 065
  6. CALCIUM [Concomitant]
     Route: 065
  7. MULTI-VITAMIN [Concomitant]
     Route: 065
  8. RITALIN [Concomitant]
     Route: 065

REACTIONS (1)
  - ABDOMINAL PAIN UPPER [None]
